FAERS Safety Report 19670905 (Version 1)
Quarter: 2021Q3

REPORT INFORMATION
  Report Type: Report from Study
  Country: US (occurrence: US)
  Receive Date: 20210806
  Receipt Date: 20210806
  Transmission Date: 20211014
  Serious: Yes (Other)
  Sender: FDA-Public Use
  Company Number: US-TAKEDA-US202008903

PATIENT
  Age: 64 Year
  Sex: Female

DRUGS (1)
  1. HUMAN NORMAL IMMUNOGLOBULIN; LIQUID [Suspect]
     Active Substance: HUMAN IMMUNOGLOBULIN G
     Indication: IMMUNODEFICIENCY COMMON VARIABLE
     Dosage: 10 GRAM, 1X/WEEK
     Route: 058

REACTIONS (7)
  - COVID-19 [Unknown]
  - Foot fracture [Unknown]
  - Coccidioidomycosis [Unknown]
  - Asthma [Unknown]
  - Arthralgia [Unknown]
  - Neuropathy peripheral [Unknown]
  - Migraine [Unknown]

NARRATIVE: CASE EVENT DATE: 201907
